FAERS Safety Report 5658223-X (Version None)
Quarter: 2008Q1

REPORT INFORMATION
  Report Type: 
  Country: None (occurrence: None)
  Receive Date: 20080310
  Receipt Date: 20070223
  Transmission Date: 20080703
  Serious: No
  Sender: FDA-Public Use
  Company Number: US-BAYER-200710144BCC

PATIENT
  Age: 64 Year
  Sex: Female
  Weight: 50 kg

DRUGS (7)
  1. ALEVE [Suspect]
     Indication: MUSCULOSKELETAL PAIN
     Dosage: UNIT DOSE: 220 MG
     Route: 048
     Dates: start: 20070101, end: 20070115
  2. ALEVE [Suspect]
     Dosage: UNIT DOSE: 220 MG
     Route: 048
     Dates: start: 20060901, end: 20061101
  3. NASACORT [Concomitant]
  4. PREMARIN [Concomitant]
  5. PROVERA [Concomitant]
  6. AMBIEN [Concomitant]
  7. ESTRACE [Concomitant]

REACTIONS (3)
  - BLOOD URINE PRESENT [None]
  - CYSTITIS [None]
  - METRORRHAGIA [None]
